FAERS Safety Report 7810748-4 (Version None)
Quarter: 2011Q4

REPORT INFORMATION
  Report Type: 
  Country: None (occurrence: None)
  Receive Date: 20111006
  Receipt Date: 20110922
  Transmission Date: 20120403
  Serious: Yes (Other)
  Sender: FDA-Public Use
  Company Number: US-2011-10694

PATIENT
  Sex: Male

DRUGS (1)
  1. SAMSCA [Suspect]

REACTIONS (1)
  - EMERGENCY CARE [None]
